FAERS Safety Report 8971487 (Version 3)
Quarter: 2013Q1

REPORT INFORMATION
  Report Type: Spontaneous
  Country: GB (occurrence: GB)
  Receive Date: 20121217
  Receipt Date: 20130307
  Transmission Date: 20140127
  Serious: Yes (Life-Threatening, Hospitalization, Disabling)
  Sender: FDA-Public Use
  Company Number: GB-GLAXOSMITHKLINE-B0852366A

PATIENT
  Age: 62 Year
  Sex: Female

DRUGS (24)
  1. ALLI [Suspect]
     Indication: WEIGHT DECREASED
     Dosage: 120MG THREE TIMES PER DAY
     Route: 048
     Dates: start: 200905, end: 20101003
  2. DOMPERIDONE [Concomitant]
  3. QVAR [Concomitant]
  4. HUMULIN [Concomitant]
  5. CALCICHEW [Concomitant]
  6. HYDROMORPHONE [Concomitant]
  7. QUININE SULPHATE [Concomitant]
  8. ROSUVASTATIN [Concomitant]
  9. DOTHIEPIN [Concomitant]
     Dosage: 125MG PER DAY
  10. FEXOFENADINE [Concomitant]
     Dosage: 120MG PER DAY
  11. SENNA [Concomitant]
     Dosage: 30MG PER DAY
  12. FLUOXETINE [Concomitant]
     Dosage: 20MG PER DAY
  13. RANITIDINE [Concomitant]
     Dosage: 150MG PER DAY
  14. HYDROMORPHONE [Concomitant]
     Dosage: 2.6MG PER DAY
  15. ALLOPURINOL [Concomitant]
     Dosage: 100MG PER DAY
  16. GTN SPRAY [Concomitant]
  17. FENTANYL [Concomitant]
  18. SALBUTAMOL [Concomitant]
  19. OMEPRAZOLE [Concomitant]
  20. GLICLAZIDE [Concomitant]
  21. METOCLOPRAMIDE [Concomitant]
  22. FUROSEMIDE [Concomitant]
  23. ADIZEM XL [Concomitant]
  24. THYROXINE [Concomitant]

REACTIONS (10)
  - Renal failure [Not Recovered/Not Resolved]
  - Femur fracture [Unknown]
  - Nephropathy [Not Recovered/Not Resolved]
  - Confusional state [Unknown]
  - Calcium deficiency [Unknown]
  - Local swelling [Unknown]
  - Infection [Unknown]
  - Fall [Unknown]
  - Tooth disorder [Unknown]
  - Concussion [Unknown]
